FAERS Safety Report 7040126-X (Version None)
Quarter: 2010Q4

REPORT INFORMATION
  Report Type: 
  Country: None (occurrence: None)
  Receive Date: 20101012
  Receipt Date: 20101004
  Transmission Date: 20110411
  Serious: Yes (Hospitalization)
  Sender: FDA-Public Use
  Company Number: PHHO2010US15208

PATIENT
  Age: 70 Year
  Sex: Female
  Weight: 98.1 kg

DRUGS (11)
  1. DIOVAN [Suspect]
     Indication: HYPERTENSION
     Dosage: 160 MG, QD
     Route: 048
     Dates: start: 20080229, end: 20100725
  2. METFORMIN HYDROCHLORIDE [Suspect]
     Dosage: UNK
     Dates: start: 20071116, end: 20100724
  3. PLAVIX [Suspect]
     Indication: CORONARY ARTERY DISEASE
     Dosage: UNK
     Dates: start: 20090109
  4. NEXIUM [Concomitant]
     Dosage: UNK
     Dates: start: 20070621, end: 20091102
  5. CRESTOR [Concomitant]
     Dosage: UNK
     Dates: start: 20090109
  6. ACETYLSALICYLIC ACID SRT [Concomitant]
     Dosage: UNK
     Dates: start: 20090109
  7. VITAMIN B6 [Concomitant]
     Dosage: UNK
     Dates: start: 20070910
  8. ALBUTEROL [Concomitant]
     Dosage: UNK
     Dates: start: 20080424
  9. ADVAIR DISKUS 100/50 [Concomitant]
     Dosage: UNK
     Dates: start: 20080424
  10. VICODIN [Concomitant]
     Dosage: UNK
     Dates: start: 20091102
  11. MAGNESIUM [Concomitant]
     Dosage: UNK
     Dates: start: 20080524

REACTIONS (3)
  - NEPHROLITHIASIS [None]
  - RENAL FAILURE ACUTE [None]
  - THROMBOCYTOPENIA [None]
